FAERS Safety Report 4345946-8 (Version None)
Quarter: 2004Q1

REPORT INFORMATION
  Report Type: 
  Country: None (occurrence: None)
  Receive Date: 20040325
  Receipt Date: 20040115
  Transmission Date: 20041129
  Serious: No
  Sender: FDA-Public Use
  Company Number: USA040156793

PATIENT
  Age: 55 Year

DRUGS (1)
  1. FORTEO [Suspect]

REACTIONS (1)
  - URTICARIA [None]
